FAERS Safety Report 7350577-1 (Version None)
Quarter: 2011Q1

REPORT INFORMATION
  Report Type: 
  Country: None (occurrence: None)
  Receive Date: 20110314
  Receipt Date: 20110308
  Transmission Date: 20110831
  Serious: Yes (Hospitalization)
  Sender: FDA-Public Use
  Company Number: GB-MERCK-1103GBR00050

PATIENT
  Age: 74 Year
  Sex: Female

DRUGS (4)
  1. ZETIA [Suspect]
     Route: 048
  2. METFORMIN [Suspect]
     Route: 065
  3. RAMIPRIL [Concomitant]
     Route: 065
  4. PIOGLITAZONE HYDROCHLORIDE [Concomitant]
     Route: 065

REACTIONS (2)
  - PANCREATITIS ACUTE [None]
  - LACTIC ACIDOSIS [None]
